FAERS Safety Report 13701426 (Version 3)
Quarter: 2024Q4

REPORT INFORMATION
  Report Type: Spontaneous
  Country: JP (occurrence: JP)
  Receive Date: 20170629
  Receipt Date: 20241022
  Transmission Date: 20250114
  Serious: Yes (Other)
  Sender: SANOFI AVENTIS
  Company Number: JP-SA-2017SA115869

PATIENT
  Age: 66 Year
  Sex: Male

DRUGS (6)
  1. TAXOTERE [Suspect]
     Active Substance: DOCETAXEL
     Indication: Squamous cell carcinoma
     Dosage: 15 MG/M2, QW
     Route: 051
  2. TAXOTERE [Suspect]
     Active Substance: DOCETAXEL
     Indication: Head and neck cancer
  3. TAXOTERE [Suspect]
     Active Substance: DOCETAXEL
     Indication: Lip and/or oral cavity cancer
  4. CETUXIMAB [Suspect]
     Active Substance: CETUXIMAB
     Indication: Squamous cell carcinoma
     Dosage: 400 MG/M2, QW, WEEK 1
     Route: 065
  5. CETUXIMAB [Suspect]
     Active Substance: CETUXIMAB
     Indication: Lip and/or oral cavity cancer
     Dosage: 250 MG/M2, QW, WEEKLY
     Route: 065
  6. CETUXIMAB [Suspect]
     Active Substance: CETUXIMAB
     Indication: Head and neck cancer

REACTIONS (2)
  - Aspiration [Unknown]
  - Staphylococcus test positive [Unknown]
